FAERS Safety Report 5311345-5 (Version None)
Quarter: 2007Q2

REPORT INFORMATION
  Report Type: 
  Country: None (occurrence: None)
  Receive Date: 20070426
  Receipt Date: 20070426
  Transmission Date: 20071010
  Serious: Yes (Hospitalization)
  Sender: FDA-Public Use
  Company Number: None

PATIENT
  Age: 69 Year
  Sex: Male
  Weight: 114 kg

DRUGS (20)
  1. ENOXAPARIN 100MG Q 12 HOURS [Suspect]
     Indication: DRUG THERAPY
     Dosage: 100MG Q 12 HOURS SQ
     Route: 058
     Dates: start: 20061120, end: 20061123
  2. ACETAMINOPHEN [Concomitant]
  3. ALLOPURINOL [Concomitant]
  4. ASPIRIN [Concomitant]
  5. CALCIUM CO3 / VIT D [Concomitant]
  6. CHOLESTYRAMINE LIGHT [Concomitant]
  7. ENOXAPARIN SODIUM [Concomitant]
  8. FELODIPINE [Concomitant]
  9. FENOFIBRATE [Concomitant]
  10. FERROUS SULFATE TAB [Concomitant]
  11. FOLIC ACID [Concomitant]
  12. FUROSEMIDE [Concomitant]
  13. GLIPIZIDE [Concomitant]
  14. ISOSORBIDE DINITRATE [Concomitant]
  15. LOSARTAN POTASSIUM [Concomitant]
  16. NIACIN [Concomitant]
  17. OMEPRAZOLE [Concomitant]
  18. PENTOXIFYLLINE [Concomitant]
  19. SIMVASTATIN [Concomitant]
  20. TERAZOSIN HCL [Concomitant]

REACTIONS (11)
  - ABDOMINAL HAEMATOMA [None]
  - BLOOD PHOSPHORUS INCREASED [None]
  - ELECTROLYTE IMBALANCE [None]
  - HAEMATEMESIS [None]
  - ILEUS [None]
  - INJECTION SITE SWELLING [None]
  - INTESTINAL ISCHAEMIA [None]
  - RENAL FAILURE ACUTE [None]
  - SMALL INTESTINAL OBSTRUCTION [None]
  - UPPER GASTROINTESTINAL HAEMORRHAGE [None]
  - WRONG TECHNIQUE IN DRUG USAGE PROCESS [None]
